FAERS Safety Report 11071152 (Version 1)
Quarter: 2015Q2

REPORT INFORMATION
  Report Type: Spontaneous
  Country: US (occurrence: None)
  Receive Date: 20150427
  Receipt Date: 20150427
  Transmission Date: 20150821
  Serious: Yes (Hospitalization, Disabling, Other)
  Sender: FDA-Public Use
  Company Number: None

PATIENT
  Sex: Male

DRUGS (1)
  1. XYREM [Suspect]
     Active Substance: SODIUM OXYBATE
     Dosage: UP TO 8 ML, 2X NIGHT
     Route: 048
     Dates: start: 2008

REACTIONS (12)
  - Anxiety [None]
  - Somnambulism [None]
  - Derealisation [None]
  - Depersonalisation [None]
  - Homicidal ideation [None]
  - Psychotic disorder [None]
  - Aggression [None]
  - Memory impairment [None]
  - Cataplexy [None]
  - Activities of daily living impaired [None]
  - Suicidal ideation [None]
  - Agitation [None]

NARRATIVE: CASE EVENT DATE: 2008
